FAERS Safety Report 4660564-X (Version None)
Quarter: 2005Q2

REPORT INFORMATION
  Report Type: 
  Country: None (occurrence: None)
  Receive Date: 20050425
  Receipt Date: 20041008
  Transmission Date: 20051028
  Serious: No
  Sender: FDA-Public Use
  Company Number: US094726

PATIENT
  Age: 51 Year
  Sex: Male
  Weight: 162.5 kg

DRUGS (9)
  1. SENSIPAR [Suspect]
     Indication: HYPERPARATHYROIDISM SECONDARY
     Dosage: 30 MG, 1 IN 1 DAYS,PO
     Route: 048
     Dates: start: 20041004, end: 20041005
  2. VICODIN [Concomitant]
  3. PHOSLO [Concomitant]
  4. SEVELAMER HCL [Concomitant]
  5. MINOXIDIL [Concomitant]
  6. FOLIC ACID [Concomitant]
  7. ATENOLOL [Concomitant]
  8. NEPHRO-VITE [Concomitant]
  9. ASPIRIN [Concomitant]

REACTIONS (3)
  - ANXIETY [None]
  - DEPRESSION [None]
  - SUICIDAL IDEATION [None]
